FAERS Safety Report 13985504 (Version 1)
Quarter: 2017Q3

REPORT INFORMATION
  Report Type: Spontaneous
  Country: US (occurrence: US)
  Receive Date: 20170918
  Receipt Date: 20170918
  Transmission Date: 20171128
  Serious: Yes (Death)
  Sender: FDA-Public Use
  Company Number: None

PATIENT
  Age: 88 Year
  Sex: Male
  Weight: 81 kg

DRUGS (8)
  1. KEPPRA [Suspect]
     Active Substance: LEVETIRACETAM
  2. LEXAPRO [Suspect]
     Active Substance: ESCITALOPRAM OXALATE
     Indication: ANTIDEPRESSANT THERAPY
     Dates: end: 20170803
  3. LATANOPROST. [Concomitant]
     Active Substance: LATANOPROST
  4. ELIQUIS [Suspect]
     Active Substance: APIXABAN
     Indication: ARRHYTHMIA
     Dosage: ?          QUANTITY:1 TABLET(S);?
     Route: 048
     Dates: start: 20170301, end: 20170803
  5. ESCITALOPRAM [Concomitant]
     Active Substance: ESCITALOPRAM OXALATE
  6. DORZOLAMIDE [Concomitant]
     Active Substance: DORZOLAMIDE
  7. LIQUIS [Concomitant]
  8. SOTALOL. [Concomitant]
     Active Substance: SOTALOL

REACTIONS (9)
  - Vomiting [None]
  - Haemorrhagic stroke [None]
  - Dizziness [None]
  - Dyspnoea [None]
  - Paraesthesia [None]
  - Drug interaction [None]
  - Fatigue [None]
  - Unresponsive to stimuli [None]
  - Headache [None]

NARRATIVE: CASE EVENT DATE: 20170803
